FAERS Safety Report 4710006-0 (Version None)
Quarter: 2005Q3

REPORT INFORMATION
  Report Type: 
  Country: None (occurrence: None)
  Receive Date: 20050708
  Receipt Date: 20050620
  Transmission Date: 20060218
  Serious: Yes (Disabling)
  Sender: FDA-Public Use
  Company Number: PHNR2005AU00998

PATIENT
  Sex: Female

DRUGS (2)
  1. ZOMETA [Suspect]
     Indication: METASTASES TO BONE
     Dosage: 4MG EVERY 4 WEEKS
     Dates: start: 20041001
  2. ADRIAMYCIN + CYCLOPHOSPHAMIDE [Concomitant]
     Dosage: 6 WEEKLY
     Dates: end: 20050324

REACTIONS (3)
  - ASEPTIC NECROSIS BONE [None]
  - METASTASES TO BONE [None]
  - PAIN IN JAW [None]
